FAERS Safety Report 21818989 (Version 1)
Quarter: 2023Q1

REPORT INFORMATION
  Report Type: Spontaneous
  Country: US (occurrence: US)
  Receive Date: 20230104
  Receipt Date: 20230104
  Transmission Date: 20230418
  Serious: No
  Sender: FDA-Public Use
  Company Number: US-MYLANLABS-2022M1124244

PATIENT
  Sex: Female
  Weight: 90.72 kg

DRUGS (2)
  1. ESTRADIOL TRANSDERMAL SYSTEM [Suspect]
     Active Substance: ESTRADIOL
     Indication: Product used for unknown indication
     Dosage: 0.1 MILLIGRAM, QD (TWICE WEEKLY)
     Route: 062
  2. ESTRADIOL TRANSDERMAL SYSTEM [Suspect]
     Active Substance: ESTRADIOL
     Dosage: UNK
     Route: 065

REACTIONS (8)
  - Flushing [Unknown]
  - Mood altered [Unknown]
  - Feeling abnormal [Unknown]
  - Insomnia [Unknown]
  - Adverse drug reaction [Unknown]
  - Product adhesion issue [Unknown]
  - Product quality issue [Unknown]
  - Therapeutic product effect incomplete [Unknown]
